FAERS Safety Report 12290135 (Version 2)
Quarter: 2016Q2

REPORT INFORMATION
  Report Type: Spontaneous
  Country: JP (occurrence: JP)
  Receive Date: 20160421
  Receipt Date: 20160516
  Transmission Date: 20160815
  Serious: Yes (Hospitalization, Other)
  Sender: FDA-Public Use
  Company Number: JP-GLAXOSMITHKLINE-JP2016JPN053025

PATIENT
  Age: 19 Year
  Sex: Male
  Weight: 59 kg

DRUGS (1)
  1. EPOPROSTENOL. [Suspect]
     Active Substance: EPOPROSTENOL
     Dosage: UNK
     Route: 041
     Dates: start: 201212

REACTIONS (9)
  - Lymphadenopathy [Recovering/Resolving]
  - Thyroid pain [Recovering/Resolving]
  - Autoimmune thyroiditis [Recovering/Resolving]
  - C-reactive protein increased [Recovering/Resolving]
  - White blood cell count increased [Recovering/Resolving]
  - Thyroglobulin increased [Recovering/Resolving]
  - Goitre [Recovering/Resolving]
  - Hypothyroidism [Unknown]
  - Pyrexia [Recovered/Resolved]

NARRATIVE: CASE EVENT DATE: 2015
